FAERS Safety Report 14257111 (Version 1)
Quarter: 2017Q4

REPORT INFORMATION
  Report Type: Spontaneous
  Country: US (occurrence: US)
  Receive Date: 20171206
  Receipt Date: 20171206
  Transmission Date: 20180321
  Serious: No
  Sender: FDA-Public Use
  Company Number: US-AMGEN-USASP2017180896

PATIENT
  Age: 59 Year
  Sex: Female

DRUGS (18)
  1. ADVAIR HFA [Concomitant]
     Active Substance: FLUTICASONE PROPIONATE\SALMETEROL XINAFOATE
     Dosage: 250/50,UNK
  2. SOMA [Concomitant]
     Active Substance: CARISOPRODOL
     Dosage: 350 MG, UNK
  3. PREDNISONE. [Concomitant]
     Active Substance: PREDNISONE
     Dosage: 20 MG, UNK
  4. BACTRIM [Concomitant]
     Active Substance: SULFAMETHOXAZOLE\TRIMETHOPRIM
     Dosage: UNK
  5. PATADAY [Concomitant]
     Active Substance: OLOPATADINE HYDROCHLORIDE
     Dosage: UNK
  6. HYDROCODONE/ACETAMINOPHEN [Concomitant]
     Active Substance: ACETAMINOPHEN\HYDROCODONE
     Dosage: UNK
  7. ENBREL [Suspect]
     Active Substance: ETANERCEPT
     Indication: RHEUMATOID ARTHRITIS
     Dosage: 50 MG, QWK
     Route: 058
     Dates: start: 201701, end: 201711
  8. TRAZODONE [Concomitant]
     Active Substance: TRAZODONE HYDROCHLORIDE
     Dosage: 100 MG, UNK
  9. ORPHENADRINE [Concomitant]
     Active Substance: ORPHENADRINE
     Dosage: 100 MG, UNK
  10. AZITHROMYCIN ANHYDROUS. [Concomitant]
     Active Substance: AZITHROMYCIN ANHYDROUS
     Dosage: 250 MG, UNK
  11. OMEPRAZOLE. [Concomitant]
     Active Substance: OMEPRAZOLE
     Dosage: UNK
  12. COMBIVENT RESPIMAT [Concomitant]
     Active Substance: ALBUTEROL SULFATE\IPRATROPIUM BROMIDE
     Dosage: UNK
  13. ATORVASTATIN [Concomitant]
     Active Substance: ATORVASTATIN
     Dosage: 10 MG, UNK
  14. LEVOFLOXACIN. [Concomitant]
     Active Substance: LEVOFLOXACIN
     Dosage: 500 MG, UNK
  15. AMITRIPTYLIN [Concomitant]
     Active Substance: AMITRIPTYLINE
     Dosage: 25 MG, UNK
  16. GABAPENTIN. [Concomitant]
     Active Substance: GABAPENTIN
     Dosage: 600 MG, UNK
  17. BUPROPION HYDROCHLORIDE XL [Concomitant]
     Active Substance: BUPROPION HYDROCHLORIDE
     Dosage: 300 MG, UNK
  18. METHYLPRED [Concomitant]
     Active Substance: METHYLPREDNISOLONE
     Dosage: 4 MG, UNK

REACTIONS (1)
  - Drug ineffective [Unknown]

NARRATIVE: CASE EVENT DATE: 2017
